FAERS Safety Report 7273341 (Version 5)
Quarter: 2020Q3

REPORT INFORMATION
  Report Type: Report from Study
  Country: None (occurrence: ES)
  Receive Date: 20100208
  Receipt Date: 20101022
  Transmission Date: 20201104
  Serious: Yes (Death, Hospitalization)
  Sender: FDA-Public Use
  Company Number: ES-WYE-H12911710

PATIENT
  Age: 54 Year
  Sex: Male
  Weight: 157 kg

DRUGS (6)
  1. HYDROCHLOROTHIAZIDE. [Concomitant]
     Active Substance: HYDROCHLOROTHIAZIDE
  2. INTERFERON ALFA NOS [Concomitant]
     Active Substance: INTERFERON ALFA-2A OR INTERFERON ALFA-2B
     Indication: RENAL CELL CARCINOMA
     Dosage: 9 ^MILLIONS^ THREE TIMES PER WEEK
     Route: 058
     Dates: start: 20091124, end: 20091223
  3. METFORMIN [Concomitant]
     Active Substance: METFORMIN HYDROCHLORIDE
  4. GLIBENCLAMIDE [Concomitant]
     Active Substance: GLYBURIDE
  5. AVASTIN [Suspect]
     Active Substance: BEVACIZUMAB
     Indication: RENAL CELL CARCINOMA
     Route: 042
     Dates: start: 20091124, end: 20091223
  6. ENALAPRIL [Concomitant]
     Active Substance: ENALAPRIL

REACTIONS (2)
  - Pneumonia [Fatal]
  - Septic shock [Not Recovered/Not Resolved]

NARRATIVE: CASE EVENT DATE: 20100101
